FAERS Safety Report 4885165-X (Version None)
Quarter: 2006Q1

REPORT INFORMATION
  Report Type: 
  Country: None (occurrence: None)
  Receive Date: 20060119
  Receipt Date: 20060104
  Transmission Date: 20060701
  Serious: Yes (Other)
  Sender: FDA-Public Use
  Company Number: NL-AMGEN-UK164064

PATIENT

DRUGS (3)
  1. KINERET [Suspect]
     Indication: RHEUMATOID ARTHRITIS
     Route: 058
     Dates: start: 20020101, end: 20040101
  2. METHOTREXATE [Concomitant]
     Route: 065
  3. CORTICOSTEROIDS [Concomitant]
     Route: 065

REACTIONS (1)
  - THROMBOCYTOPENIA [None]
